FAERS Safety Report 4398719-4 (Version None)
Quarter: 2004Q3

REPORT INFORMATION
  Report Type: 
  Country: None (occurrence: None)
  Receive Date: 20040715
  Receipt Date: 20040709
  Transmission Date: 20050211
  Serious: Yes (Death, Hospitalization)
  Sender: FDA-Public Use
  Company Number: PHBS2004IT09272

PATIENT
  Age: 77 Year
  Sex: Female

DRUGS (2)
  1. CYCLOSPORINE [Suspect]
     Indication: PSORIATIC ARTHROPATHY
     Dosage: 200 MG/D
  2. CERIVASTATIN [Suspect]
     Indication: HYPERCHOLESTEROLAEMIA
     Dosage: 0.4 MG/D

REACTIONS (19)
  - ALANINE AMINOTRANSFERASE INCREASED [None]
  - ASPARTATE AMINOTRANSFERASE INCREASED [None]
  - BLOOD CREATINE PHOSPHOKINASE INCREASED [None]
  - COLOSTOMY [None]
  - COMA [None]
  - CONSTIPATION [None]
  - DRUG INTERACTION [None]
  - GASTROINTESTINAL NECROSIS [None]
  - HYPERCHOLESTEROLAEMIA [None]
  - HYPOKINESIA [None]
  - ILEUS PARALYTIC [None]
  - MUSCULAR WEAKNESS [None]
  - MYALGIA [None]
  - MYOGLOBIN BLOOD INCREASED [None]
  - MYOGLOBINURIA [None]
  - MYOPATHY TOXIC [None]
  - RENAL FAILURE ACUTE [None]
  - RESPIRATORY DISTRESS [None]
  - RHABDOMYOLYSIS [None]
